FAERS Safety Report 14636431 (Version 1)
Quarter: 2018Q1

REPORT INFORMATION
  Report Type: Spontaneous
  Country: US (occurrence: US)
  Receive Date: 20180314
  Receipt Date: 20180314
  Transmission Date: 20180509
  Serious: No
  Sender: FDA-Public Use
  Company Number: US-GLENMARK PHARMACEUTICALS-2017GMK027340

PATIENT

DRUGS (2)
  1. AMOXICILLIN. [Concomitant]
     Active Substance: AMOXICILLIN
     Indication: SKIN INFECTION
     Dosage: 1500 MG, QD
     Route: 048
  2. MUPIROCIN. [Suspect]
     Active Substance: MUPIROCIN
     Indication: SKIN INFECTION
     Dosage: UNK, TID
     Route: 061
     Dates: start: 20170426, end: 20170428

REACTIONS (2)
  - Product use in unapproved indication [Unknown]
  - Application site pruritus [Recovered/Resolved]

NARRATIVE: CASE EVENT DATE: 20170427
